FAERS Safety Report 7859671-X (Version None)
Quarter: 2011Q4

REPORT INFORMATION
  Report Type: 
  Country: None (occurrence: None)
  Receive Date: 20111027
  Receipt Date: 20111017
  Transmission Date: 20120403
  Serious: Yes (Other)
  Sender: FDA-Public Use
  Company Number: US-JNJFOC-20111007045

PATIENT
  Sex: Male
  Weight: 58.06 kg

DRUGS (2)
  1. REMICADE [Suspect]
     Indication: CROHN'S DISEASE
     Route: 042
     Dates: end: 20100101
  2. REMICADE [Suspect]
     Route: 042

REACTIONS (6)
  - WEIGHT INCREASED [None]
  - FLUSHING [None]
  - DRUG EFFECT DECREASED [None]
  - CHEST DISCOMFORT [None]
  - DYSPNOEA [None]
  - DEPRESSED MOOD [None]
